FAERS Safety Report 16006432 (Version 5)
Quarter: 2019Q3

REPORT INFORMATION
  Report Type: Spontaneous
  Country: US (occurrence: US)
  Receive Date: 20190225
  Receipt Date: 20190904
  Transmission Date: 20191004
  Serious: No
  Sender: FDA-Public Use
  Company Number: US-PFIZER INC-2016385039

PATIENT
  Age: 69 Year
  Sex: Female
  Weight: 55.78 kg

DRUGS (4)
  1. DICYCLOMINE [Concomitant]
     Active Substance: DICYCLOMINE HYDROCHLORIDE
     Dosage: UNK
  2. NITROSTAT [Suspect]
     Active Substance: NITROGLYCERIN
     Dosage: UNK
  3. NITROSTAT [Suspect]
     Active Substance: NITROGLYCERIN
     Dosage: 0.4 MG, AS NEEDED
     Route: 060
  4. NITROSTAT [Suspect]
     Active Substance: NITROGLYCERIN
     Indication: ANGINA UNSTABLE
     Dosage: 0.4 MG, 1X/DAY
     Route: 060

REACTIONS (12)
  - Expired product administered [Unknown]
  - Malaise [Unknown]
  - Gingivitis [Unknown]
  - Urinary tract infection [Unknown]
  - Loose tooth [Unknown]
  - Gait disturbance [Unknown]
  - Sensation of blood flow [Unknown]
  - Disease progression [Unknown]
  - Pain in jaw [Unknown]
  - Intentional product misuse [Unknown]
  - Osteoporosis [Unknown]
  - Fall [Unknown]

NARRATIVE: CASE EVENT DATE: 201902
